FAERS Safety Report 7587559-0 (Version None)
Quarter: 2011Q3

REPORT INFORMATION
  Report Type: 
  Country: None (occurrence: None)
  Receive Date: 20110704
  Receipt Date: 20110620
  Transmission Date: 20111222
  Serious: Yes (Disabling, Other)
  Sender: FDA-Public Use
  Company Number: PHHY2011CA51846

PATIENT
  Sex: Female

DRUGS (8)
  1. ASPIRIN [Concomitant]
     Dosage: 325 MG, DAILY
  2. DARICON [Concomitant]
     Dosage: 30 MG, TWICE DAILY
  3. GLUCOPHAGE [Concomitant]
     Dosage: 500 MG, BID
  4. EVISTA [Concomitant]
     Dosage: 60 MG,
  5. ZOLEDRONIC ACID [Suspect]
     Indication: OSTEOPOROSIS
     Dosage: 5 MG, 1 DOSE
     Route: 042
     Dates: start: 20100901
  6. COZAAR [Concomitant]
     Dosage: 25 MG, DAILY
  7. MIACALCIN [Concomitant]
  8. PANTOPRAZOLE SODIUM [Concomitant]
     Dosage: 40 MG,

REACTIONS (4)
  - UPPER RESPIRATORY TRACT INFECTION [None]
  - URINARY INCONTINENCE [None]
  - MYALGIA [None]
  - INFLUENZA [None]
